FAERS Safety Report 13603983 (Version 1)
Quarter: 2017Q2

REPORT INFORMATION
  Report Type: Spontaneous
  Country: JP (occurrence: JP)
  Receive Date: 20170602
  Receipt Date: 20170602
  Transmission Date: 20170830
  Serious: Yes (Other)
  Sender: FDA-Public Use
  Company Number: JP-BAUSCH-BL-2017-010770

PATIENT
  Age: 75 Year
  Sex: Male

DRUGS (2)
  1. VISUDYNE [Suspect]
     Active Substance: VERTEPORFIN
     Indication: AGE-RELATED MACULAR DEGENERATION
     Route: 042
  2. LUCENTIS [Suspect]
     Active Substance: RANIBIZUMAB
     Indication: AGE-RELATED MACULAR DEGENERATION
     Dosage: SOLUTION IN SYRINGE
     Route: 050

REACTIONS (4)
  - Retinal haemorrhage [Recovering/Resolving]
  - Age-related macular degeneration [Unknown]
  - Disease progression [Unknown]
  - Visual acuity reduced [Unknown]
